FAERS Safety Report 9341757 (Version 2)
Quarter: 2014Q1

REPORT INFORMATION
  Report Type: Report from Study
  Country: US (occurrence: US)
  Receive Date: 20130611
  Receipt Date: 20140122
  Transmission Date: 20141002
  Serious: Yes (Hospitalization, Other)
  Sender: FDA-Public Use
  Company Number: US-ROCHE-1231787

PATIENT
  Age: 62 Year
  Sex: Female

DRUGS (7)
  1. RANIBIZUMAB [Suspect]
     Indication: RETINAL VEIN OCCLUSION
     Dosage: RIGHT EYE
     Route: 050
  2. RITUXIMAB [Suspect]
     Indication: NON-HODGKIN^S LYMPHOMA
     Route: 065
     Dates: start: 2010, end: 2012
  3. PROZAC [Concomitant]
     Indication: DEPRESSION
     Route: 048
  4. LAMICTAL [Concomitant]
     Route: 048
  5. LOPRESSOR [Concomitant]
     Indication: BLOOD PRESSURE
     Route: 048
  6. NORVASC [Concomitant]
     Indication: BLOOD PRESSURE
     Route: 048
  7. ATIVAN [Concomitant]
     Indication: ANXIETY
     Route: 048

REACTIONS (12)
  - Intestinal obstruction [Recovered/Resolved]
  - Neoplasm malignant [Unknown]
  - Eye pain [Recovered/Resolved]
  - Eye irritation [Recovered/Resolved]
  - Visual impairment [Recovered/Resolved]
  - Cyanopsia [Recovered/Resolved]
  - Vitreous floaters [Recovered/Resolved]
  - Blood pressure abnormal [Recovered/Resolved]
  - Dry eye [Recovered/Resolved]
  - Lipoma [Unknown]
  - Infection [Recovering/Resolving]
  - Hypoacusis [Unknown]
